FAERS Safety Report 23783511 (Version 1)
Quarter: 2024Q2

REPORT INFORMATION
  Report Type: Spontaneous
  Country: US (occurrence: None)
  Receive Date: 20240422
  Receipt Date: 20240422
  Transmission Date: 20240715
  Serious: No
  Sender: FDA-Public Use
  Company Number: None

PATIENT
  Sex: 0

DRUGS (1)
  1. COSMETICS [Suspect]
     Active Substance: COSMETICS
     Indication: Chloasma
     Dosage: FREQUENCY : DAILY TOPICAL?
     Route: 061

REACTIONS (3)
  - Urticaria [None]
  - Product quality issue [None]
  - Product contamination microbial [None]

NARRATIVE: CASE EVENT DATE: 20240419
